FAERS Safety Report 13232250 (Version 2)
Quarter: 2020Q1

REPORT INFORMATION
  Report Type: Report from Study
  Country: US (occurrence: US)
  Receive Date: 20170214
  Receipt Date: 20200221
  Transmission Date: 20200409
  Serious: No
  Sender: FDA-Public Use
  Company Number: US-009507513-1702USA005489

PATIENT

DRUGS (10)
  1. ZOLINZA [Suspect]
     Active Substance: VORINOSTAT
     Dosage: 180 MG/M2/DOSE, DAYS 17-24
     Route: 048
  2. MITOXANTRONE HYDROCHLORIDE. [Concomitant]
     Active Substance: MITOXANTRONE HYDROCHLORIDE
     Indication: ACUTE LYMPHOCYTIC LEUKAEMIA RECURRENT
     Dosage: 10 MG/M2, DAYS 8 AND 9
  3. METHOTREXATE. [Concomitant]
     Active Substance: METHOTREXATE
     Indication: ACUTE LYMPHOCYTIC LEUKAEMIA RECURRENT
     Dosage: DOSED ACCORDING TO AGE AND CENTRAL NERVOUS SYSTEM (CNS) STATUS
  4. DEXAMETHASONE. [Concomitant]
     Active Substance: DEXAMETHASONE
     Indication: ACUTE LYMPHOCYTIC LEUKAEMIA RECURRENT
     Dosage: 10 MILLIGRAM/SQ. METER, TWICE A DAY, DAYS 8-12
     Route: 048
  5. PEGASPARGASE [Concomitant]
     Active Substance: PEGASPARGASE
     Indication: ACUTE LYMPHOCYTIC LEUKAEMIA RECURRENT
     Dosage: 2500 IU/M2, DAYS 10 AND 24
  6. DECITABINE. [Suspect]
     Active Substance: DECITABINE
     Dosage: 15 MG/M2, DAYS 15-21
     Route: 042
  7. ZOLINZA [Suspect]
     Active Substance: VORINOSTAT
     Indication: ACUTE LYMPHOCYTIC LEUKAEMIA RECURRENT
     Dosage: 180 MG/M2/DOSE, DAYS 3-10
     Route: 048
  8. DEXAMETHASONE. [Concomitant]
     Active Substance: DEXAMETHASONE
     Dosage: 10 MILLIGRAM/SQ. METER, TWICE A DAY, DAYS 22-26
     Route: 048
  9. DECITABINE. [Suspect]
     Active Substance: DECITABINE
     Indication: ACUTE LYMPHOCYTIC LEUKAEMIA RECURRENT
     Dosage: 15 MG/M2, DAYS 1-7
     Route: 042
  10. VINCRISTINE [Concomitant]
     Active Substance: VINCRISTINE
     Indication: ACUTE LYMPHOCYTIC LEUKAEMIA RECURRENT
     Dosage: 1.5 MG/M2 (MAX DOSE 2MG), DAYS 10, 17, 24 AND 31

REACTIONS (1)
  - Toxicity to various agents [Unknown]
